FAERS Safety Report 19139521 (Version 1)
Quarter: 2021Q2

REPORT INFORMATION
  Report Type: Spontaneous
  Country: US (occurrence: US)
  Receive Date: 20210415
  Receipt Date: 20210415
  Transmission Date: 20210717
  Serious: Yes (Hospitalization)
  Sender: FDA-Public Use
  Company Number: None

PATIENT
  Age: 60 Year
  Sex: Male
  Weight: 90.1 kg

DRUGS (1)
  1. CISPLATIN. [Suspect]
     Active Substance: CISPLATIN
     Dates: end: 20201214

REACTIONS (4)
  - Weight decreased [None]
  - White blood cell count decreased [None]
  - Delayed effects of radiation [None]
  - Ill-defined disorder [None]

NARRATIVE: CASE EVENT DATE: 20210326
